FAERS Safety Report 9643204 (Version 2)
Quarter: 2014Q3

REPORT INFORMATION
  Report Type: Report from Study
  Country: CA (occurrence: CA)
  Receive Date: 20131024
  Receipt Date: 20140725
  Transmission Date: 20150326
  Serious: Yes (Other)
  Sender: FDA-Public Use
  Company Number: CA-JNJFOC-20131011630

PATIENT
  Age: 36 Year
  Sex: Female
  Weight: 79 kg

DRUGS (3)
  1. REMICADE [Suspect]
     Active Substance: INFLIXIMAB
     Indication: COLITIS ULCERATIVE
     Route: 042
     Dates: start: 20091202
  2. IMURAN [Concomitant]
     Active Substance: AZATHIOPRINE
     Dosage: ^DIE^
     Route: 065
  3. SALOFALK [Concomitant]
     Active Substance: MESALAMINE
     Dosage: 2 TO 3 HOURSOF SLEEP (HS)
     Route: 065

REACTIONS (2)
  - Tonsillectomy [Recovered/Resolved]
  - Breast cyst [Recovered/Resolved]

NARRATIVE: CASE EVENT DATE: 20131125
